FAERS Safety Report 7955064-5 (Version None)
Quarter: 2011Q4

REPORT INFORMATION
  Report Type: 
  Country: None (occurrence: None)
  Receive Date: 20111202
  Receipt Date: 20111129
  Transmission Date: 20120403
  Serious: Yes (Other)
  Sender: FDA-Public Use
  Company Number: US-BAYER-2011-115482

PATIENT
  Age: 76 Year
  Sex: Male
  Weight: 86 kg

DRUGS (1)
  1. ASPIRIN [Suspect]
     Dosage: 1 DF, QD
     Route: 048
     Dates: start: 20111118, end: 20111127

REACTIONS (4)
  - BLOOD PRESSURE INCREASED [None]
  - BLOOD GLUCOSE INCREASED [None]
  - HAEMATOCHEZIA [None]
  - GASTROINTESTINAL DISORDER [None]
